FAERS Safety Report 14519475 (Version 1)
Quarter: 2018Q1

REPORT INFORMATION
  Report Type: Spontaneous
  Country: BE (occurrence: BE)
  Receive Date: 20180212
  Receipt Date: 20180212
  Transmission Date: 20180509
  Serious: Yes (Other)
  Sender: FDA-Public Use
  Company Number: BE-SA-2018SA031388

PATIENT
  Sex: Female

DRUGS (4)
  1. 5 FU [Suspect]
     Active Substance: FLUOROURACIL
     Route: 042
  2. LEUCOVORIN. [Suspect]
     Active Substance: LEUCOVORIN
     Route: 042
  3. ZALTRAP [Suspect]
     Active Substance: ZIV-AFLIBERCEPT
     Route: 042
  4. IRINOTECAN [Suspect]
     Active Substance: IRINOTECAN
     Route: 042

REACTIONS (1)
  - Atrial thrombosis [Recovering/Resolving]
